FAERS Safety Report 8403980-2 (Version None)
Quarter: 2012Q2

REPORT INFORMATION
  Report Type: 
  Country: None (occurrence: None)
  Receive Date: 20120601
  Receipt Date: 20110929
  Transmission Date: 20120825
  Serious: No
  Sender: FDA-Public Use
  Company Number: US-NOVEN-11US003334

PATIENT
  Sex: Male

DRUGS (1)
  1. DAYTRANA [Suspect]
     Indication: ATTENTION DEFICIT/HYPERACTIVITY DISORDER
     Dosage: 10 MG, QD
     Route: 062
     Dates: start: 20110928, end: 20110929

REACTIONS (7)
  - RESTLESSNESS [None]
  - DRUG INEFFECTIVE [None]
  - INSOMNIA [None]
  - INCORRECT DRUG ADMINISTRATION DURATION [None]
  - BLEPHAROSPASM [None]
  - APPLICATION SITE ERYTHEMA [None]
  - APPLICATION SITE PRURITUS [None]
